FAERS Safety Report 5398614-8 (Version None)
Quarter: 2007Q3

REPORT INFORMATION
  Report Type: 
  Country: None (occurrence: None)
  Receive Date: 20070726
  Receipt Date: 20060605
  Transmission Date: 20080115
  Serious: No
  Sender: FDA-Public Use
  Company Number: US-AMGEN-KDL182031

PATIENT
  Sex: Female
  Weight: 52.7 kg

DRUGS (5)
  1. PROCRIT [Suspect]
     Indication: ANAEMIA
     Dates: start: 20060101, end: 20060201
  2. CARDIZEM [Concomitant]
  3. PREDNISONE TAB [Concomitant]
  4. ALBUTEROL [Concomitant]
     Route: 055
  5. SINGULAIR [Concomitant]

REACTIONS (2)
  - CONDITION AGGRAVATED [None]
  - FATIGUE [None]
